FAERS Safety Report 7516967-9 (Version None)
Quarter: 2011Q2

REPORT INFORMATION
  Report Type: 
  Country: None (occurrence: None)
  Receive Date: 20110601
  Receipt Date: 20110518
  Transmission Date: 20111010
  Serious: Yes (Other)
  Sender: FDA-Public Use
  Company Number: DE-AMGEN-DEUSP2011025884

PATIENT
  Age: 73 Year
  Sex: Female

DRUGS (3)
  1. FENTANYL [Concomitant]
     Dosage: 25 A?G, UNK
  2. IBUPROFEN [Concomitant]
     Dosage: UNK UNK, PRN
     Route: 048
  3. PROLIA [Suspect]
     Indication: OSTEOPOROSIS
     Dosage: UNK
     Route: 058
     Dates: start: 20101110, end: 20101110

REACTIONS (3)
  - TOOTH INFECTION [None]
  - DENTAL DISCOMFORT [None]
  - TOOTH EXTRACTION [None]
